FAERS Safety Report 8854829 (Version 1)
Quarter: 2012Q4

REPORT INFORMATION
  Report Type: 
  Country: CH (occurrence: CH)
  Receive Date: 20121023
  Receipt Date: 20121023
  Transmission Date: 20130627
  Serious: Yes (Hospitalization)
  Sender: FDA-Public Use
  Company Number: CH-ELI_LILLY_AND_COMPANY-CH201210003815

PATIENT
  Age: 82 Year
  Sex: Female

DRUGS (7)
  1. CYMBALTA [Suspect]
     Dosage: 30 mg, qd
     Route: 048
     Dates: start: 20120310, end: 20120316
  2. CYMBALTA [Suspect]
     Dosage: 60 mg, qd
     Route: 048
     Dates: start: 20120317, end: 20120324
  3. METOPROLOL SUCCINATE [Concomitant]
     Dosage: 100 mg, qid
     Route: 048
     Dates: start: 201201
  4. GLIMEPIRID [Concomitant]
     Indication: DIABETES MELLITUS
     Dosage: 4 mg, unknown
     Dates: start: 201201
  5. METFORMIN [Concomitant]
     Indication: DIABETES MELLITUS
     Dosage: 2000 mg, qd
     Dates: start: 201201
  6. PANTOPRAZOL [Concomitant]
     Dosage: 40 mg, qd
     Route: 048
  7. PHENPROCOUMON [Concomitant]
     Indication: INTERNATIONAL NORMALISED RATIO
     Dosage: UNK
     Dates: start: 2011

REACTIONS (6)
  - Hyponatraemia [Recovered/Resolved]
  - Blood glucose increased [Recovering/Resolving]
  - Blood prolactin decreased [Unknown]
  - Gamma-glutamyltransferase increased [Unknown]
  - C-reactive protein increased [Recovered/Resolved]
  - Blood calcium increased [Unknown]
